FAERS Safety Report 6877750-0 (Version None)
Quarter: 2010Q3

REPORT INFORMATION
  Report Type: 
  Country: None (occurrence: None)
  Receive Date: 20100727
  Receipt Date: 20100701
  Transmission Date: 20110219
  Serious: No
  Sender: FDA-Public Use
  Company Number: US-ABBOTT-10P-163-0655513-00

PATIENT
  Weight: 79.45 kg

DRUGS (5)
  1. SYNTHROID [Suspect]
     Indication: HYPOTHYROIDISM
     Dates: start: 20100423
  2. SYNTHROID [Suspect]
     Dates: start: 19980101, end: 20100423
  3. NEXIUM [Concomitant]
     Indication: GASTROOESOPHAGEAL REFLUX DISEASE
  4. LIPITOR [Concomitant]
     Indication: BLOOD CHOLESTEROL INCREASED
  5. ESTARASE [Concomitant]
     Indication: HORMONE REPLACEMENT THERAPY

REACTIONS (6)
  - CONTUSION [None]
  - DIZZINESS [None]
  - FALL [None]
  - PAIN OF SKIN [None]
  - SWELLING [None]
  - WHITE BLOOD CELL COUNT INCREASED [None]
